FAERS Safety Report 10673241 (Version 4)
Quarter: 2015Q1

REPORT INFORMATION
  Report Type: Spontaneous
  Country: US (occurrence: US)
  Receive Date: 20141224
  Receipt Date: 20150129
  Transmission Date: 20150720
  Serious: Yes (Hospitalization, Other)
  Sender: FDA-Public Use
  Company Number: US-009507513-1412USA010161

PATIENT
  Sex: Female
  Weight: 84.35 kg

DRUGS (1)
  1. IMPLANON [Suspect]
     Active Substance: ETONOGESTREL
     Dosage: 1 DF, UNK
     Route: 059
     Dates: start: 2008, end: 20140617

REACTIONS (17)
  - Systemic lupus erythematosus [Not Recovered/Not Resolved]
  - Sepsis [Not Recovered/Not Resolved]
  - Respiratory alkalosis [Not Recovered/Not Resolved]
  - Blood alkaline phosphatase increased [Unknown]
  - Dermatitis exfoliative [Not Recovered/Not Resolved]
  - Incorrect drug administration duration [Unknown]
  - Biopsy skin [Unknown]
  - Hyperglycaemia [Not Recovered/Not Resolved]
  - Oedema peripheral [Not Recovered/Not Resolved]
  - Rheumatoid arthritis [Not Recovered/Not Resolved]
  - Staphylococcal infection [Not Recovered/Not Resolved]
  - Rash [Not Recovered/Not Resolved]
  - Biopsy liver [Not Recovered/Not Resolved]
  - Hyponatraemia [Unknown]
  - Haematuria [Unknown]
  - Cholelithiasis [Not Recovered/Not Resolved]
  - Nicotinic acid deficiency [Unknown]

NARRATIVE: CASE EVENT DATE: 2011
